FAERS Safety Report 5079567-9 (Version None)
Quarter: 2006Q3

REPORT INFORMATION
  Report Type: 
  Country: None (occurrence: None)
  Receive Date: 20060811
  Receipt Date: 20060811
  Transmission Date: 20061208
  Serious: Yes (Hospitalization)
  Sender: FDA-Public Use
  Company Number: None

PATIENT
  Age: 69 Year
  Sex: Male

DRUGS (10)
  1. WARFARIN SODIUM [Suspect]
     Indication: ATRIAL FIBRILLATION
     Dosage: ONE DOSE
     Dates: start: 20060529, end: 20060529
  2. HEPARIN [Suspect]
     Indication: ATRIAL FIBRILLATION
     Dates: start: 20060527, end: 20060530
  3. BISACODYL [Concomitant]
  4. FOSINORIL [Concomitant]
  5. HEPARIN/SODIUM CHLORIDE [Concomitant]
  6. HUMULIN R [Concomitant]
  7. METOPROLOL TARTRATE [Concomitant]
  8. MORPHINE SULFATE [Concomitant]
  9. NITROGLYCERIN [Concomitant]
  10. PANTOPRAZOLE SODIUM [Concomitant]

REACTIONS (3)
  - ACTIVATED PARTIAL THROMBOPLASTIN TIME PROLONGED [None]
  - HAEMATOCRIT DECREASED [None]
  - POST PROCEDURAL COMPLICATION [None]
